FAERS Safety Report 6240209-8 (Version None)
Quarter: 2009Q2

REPORT INFORMATION
  Report Type: 
  Country: None (occurrence: None)
  Receive Date: 20090623
  Receipt Date: 20080313
  Transmission Date: 20091009
  Serious: No
  Sender: FDA-Public Use
  Company Number: US-ASTRAZENECA-2008UW05166

PATIENT
  Age: 61 Year
  Sex: Female
  Weight: 81.7 kg

DRUGS (3)
  1. PULMICORT FLEXHALER [Suspect]
     Dosage: 180 MCG 120 DOSES
     Route: 055
  2. PULMICORT FLEXHALER [Suspect]
     Dosage: 180 MCG 120 DOSES
     Route: 055
  3. QVAR 40 [Concomitant]

REACTIONS (2)
  - DYSPHONIA [None]
  - GLOSSODYNIA [None]
